FAERS Safety Report 7336865-3 (Version None)
Quarter: 2011Q1

REPORT INFORMATION
  Report Type: 
  Country: None (occurrence: None)
  Receive Date: 20110308
  Receipt Date: 20110228
  Transmission Date: 20110831
  Serious: No
  Sender: FDA-Public Use
  Company Number: US-BIOGENIDEC-2011BI007856

PATIENT
  Age: 37 Year
  Sex: Male

DRUGS (1)
  1. TYSABRI [Suspect]
     Indication: MULTIPLE SCLEROSIS
     Route: 042
     Dates: start: 20101229

REACTIONS (7)
  - FATIGUE [None]
  - HEADACHE [None]
  - DYSGEUSIA [None]
  - WHITE BLOOD CELL COUNT DECREASED [None]
  - MOOD SWINGS [None]
  - RED BLOOD CELL COUNT DECREASED [None]
  - MYALGIA [None]
